FAERS Safety Report 9352740 (Version 1)
Quarter: 2013Q2

REPORT INFORMATION
  Report Type: Spontaneous
  Country: US (occurrence: None)
  Receive Date: 20130614
  Receipt Date: 20130614
  Transmission Date: 20140414
  Serious: Yes (Other)
  Sender: FDA-Public Use
  Company Number: None

PATIENT
  Sex: Female

DRUGS (1)
  1. HUMIRA [Suspect]
     Dosage: 40MG EVERY OTHER WEEK SQ
     Route: 058
     Dates: start: 20120907

REACTIONS (2)
  - Injection site bruising [None]
  - Vision blurred [None]
